FAERS Safety Report 5786671-6 (Version None)
Quarter: 2008Q2

REPORT INFORMATION
  Report Type: 
  Country: None (occurrence: None)
  Receive Date: 20080618
  Receipt Date: 20080617
  Transmission Date: 20081010
  Serious: Yes (Hospitalization)
  Sender: FDA-Public Use
  Company Number: E2090-00486-SOL-CH

PATIENT
  Age: 47 Year
  Sex: Male
  Weight: 90 kg

DRUGS (3)
  1. ZONEGRAN [Suspect]
     Indication: EPILEPSY
     Dosage: 600 MG, 1 IN 1 D, ORAL; 1 IN 1 D, ORAL
     Route: 048
     Dates: start: 20071115
  2. LAMOTRIGINE [Concomitant]
  3. LEVETIRACETAM [Concomitant]

REACTIONS (3)
  - DEPRESSION [None]
  - NEPHROLITHIASIS [None]
  - RENAL FAILURE [None]
